FAERS Safety Report 6569863-8 (Version None)
Quarter: 2010Q1

REPORT INFORMATION
  Report Type: 
  Country: None (occurrence: None)
  Receive Date: 20100204
  Receipt Date: 20100125
  Transmission Date: 20100710
  Serious: Yes (Hospitalization)
  Sender: FDA-Public Use
  Company Number: PHHY2010CA04048

PATIENT
  Sex: Male

DRUGS (2)
  1. EXJADE [Suspect]
     Indication: MYELODYSPLASTIC SYNDROME
     Dosage: 1625 MG, QD
     Route: 048
     Dates: start: 20091201, end: 20091230
  2. EXJADE [Suspect]
     Indication: IRON OVERLOAD

REACTIONS (7)
  - ABDOMINAL DISTENSION [None]
  - ABDOMINAL PAIN UPPER [None]
  - AGEUSIA [None]
  - COMPUTERISED TOMOGRAM ABDOMEN ABNORMAL [None]
  - DRY MOUTH [None]
  - GASTRIC DISORDER [None]
  - SWELLING [None]
